FAERS Safety Report 5537582-2 (Version None)
Quarter: 2007Q4

REPORT INFORMATION
  Report Type: 
  Country: None (occurrence: None)
  Receive Date: 20071207
  Receipt Date: 20071201
  Transmission Date: 20080405
  Serious: Yes (Other)
  Sender: FDA-Public Use
  Company Number: US-ELI_LILLY_AND_COMPANY-US200710006832

PATIENT
  Sex: Male
  Weight: 83.447 kg

DRUGS (5)
  1. BYETTA [Suspect]
     Indication: TYPE 2 DIABETES MELLITUS
     Dosage: 5 UG, 2/D
     Route: 058
     Dates: start: 20050101, end: 20061101
  2. AMARYL [Concomitant]
     Indication: TYPE 2 DIABETES MELLITUS
     Dosage: 1 UG, EACH MORNING
     Route: 048
  3. GLUCOPHAGE [Concomitant]
     Indication: TYPE 2 DIABETES MELLITUS
     Dosage: 1000 MG, 3/D
     Route: 048
  4. INSULIN [Concomitant]
     Dosage: UNK, UNK
     Dates: start: 20060101, end: 20071001
  5. ACTOS [Concomitant]
     Dosage: UNK, UNKNOWN

REACTIONS (1)
  - LEUKAEMIA RECURRENT [None]
